FAERS Safety Report 4976630-5 (Version None)
Quarter: 2006Q2

REPORT INFORMATION
  Report Type: 
  Country: None (occurrence: None)
  Receive Date: 20060419
  Receipt Date: 20050901
  Transmission Date: 20061013
  Serious: Yes (Hospitalization, Other)
  Sender: FDA-Public Use
  Company Number: US-MERCK-0509USA00504

PATIENT
  Age: 65 Year
  Sex: Female
  Weight: 56 kg

DRUGS (2)
  1. VIOXX [Suspect]
     Indication: ARTHRITIS
     Route: 048
     Dates: start: 20020514, end: 20040925
  2. LORAZEPAN [Concomitant]
     Indication: SLEEP DISORDER
     Route: 065
     Dates: start: 20020226

REACTIONS (11)
  - ANXIETY [None]
  - ATRIAL FIBRILLATION [None]
  - CARDIOMYOPATHY [None]
  - CHONDROSARCOMA [None]
  - DEPRESSION [None]
  - DYSPNOEA [None]
  - HYPOKALAEMIA [None]
  - HYPOTENSION [None]
  - MYOCARDIAL INFARCTION [None]
  - SLEEP DISORDER [None]
  - VENTRICULAR DYSFUNCTION [None]
